FAERS Safety Report 11072620 (Version 1)
Quarter: 2015Q2

REPORT INFORMATION
  Report Type: Spontaneous
  Country: GB (occurrence: GB)
  Receive Date: 20150428
  Receipt Date: 20150428
  Transmission Date: 20150821
  Serious: Yes (Other)
  Sender: FDA-Public Use
  Company Number: GB-AMGEN-GBRSP2015038458

PATIENT
  Age: 6 Year
  Sex: Male

DRUGS (2)
  1. NEUPOGEN [Suspect]
     Active Substance: FILGRASTIM
     Indication: PRODUCT USED FOR UNKNOWN INDICATION
     Dosage: UNK
     Route: 065
  2. LINEZOLID. [Concomitant]
     Active Substance: LINEZOLID
     Dosage: UNK

REACTIONS (11)
  - Respiratory syncytial virus bronchiolitis [Unknown]
  - Lower respiratory tract infection [Unknown]
  - Subcutaneous abscess [Unknown]
  - Sinusitis [Unknown]
  - Rash [Unknown]
  - Scrotal abscess [Unknown]
  - Periorbital infection [Unknown]
  - Liver abscess [Unknown]
  - Otitis externa [Unknown]
  - Drug ineffective [Unknown]
  - Pseudomonas infection [Unknown]
